FAERS Safety Report 13486507 (Version 4)
Quarter: 2017Q2

REPORT INFORMATION
  Report Type: Spontaneous
  Country: US (occurrence: US)
  Receive Date: 20170426
  Receipt Date: 20170510
  Transmission Date: 20170830
  Serious: Yes (Hospitalization)
  Sender: FDA-Public Use
  Company Number: US-LUNDBECK-DKLU2029740

PATIENT
  Age: 80 Year
  Sex: Male

DRUGS (4)
  1. NORTHERA [Suspect]
     Active Substance: DROXIDOPA
     Route: 048
  2. NORTHERA [Suspect]
     Active Substance: DROXIDOPA
     Indication: AUTONOMIC NEUROPATHY
     Dosage: SCHEDULE B AND TITRATING
     Route: 048
     Dates: start: 20170406
  3. NORTHERA [Suspect]
     Active Substance: DROXIDOPA
     Route: 048
  4. NORTHERA [Suspect]
     Active Substance: DROXIDOPA
     Route: 048
     Dates: start: 20170501

REACTIONS (12)
  - Laceration [Unknown]
  - Loss of consciousness [Unknown]
  - Fall [Unknown]
  - Viral upper respiratory tract infection [Unknown]
  - Neck pain [Unknown]
  - Blood pressure abnormal [Unknown]
  - Dizziness [Unknown]
  - Limb injury [Unknown]
  - Head injury [Unknown]
  - Cough [Unknown]
  - Viral infection [Unknown]
  - Blood pressure increased [Unknown]

NARRATIVE: CASE EVENT DATE: 20170410
